FAERS Safety Report 7793267-3 (Version None)
Quarter: 2011Q3

REPORT INFORMATION
  Report Type: 
  Country: None (occurrence: None)
  Receive Date: 20110929
  Receipt Date: 20110923
  Transmission Date: 20111222
  Serious: Yes (Death, Life-Threatening, Hospitalization)
  Sender: FDA-Public Use
  Company Number: 123958

PATIENT
  Age: 35 Year
  Sex: Female

DRUGS (1)
  1. LABETALOL HCL [Suspect]
     Indication: HYPERTENSION
     Dosage: 35MG/IV
     Route: 042

REACTIONS (4)
  - LOSS OF CONSCIOUSNESS [None]
  - VENTRICULAR FIBRILLATION [None]
  - CIRCULATORY COLLAPSE [None]
  - PHAEOCHROMOCYTOMA [None]
